FAERS Safety Report 17426190 (Version 2)
Quarter: 2020Q4

REPORT INFORMATION
  Report Type: Spontaneous
  Country: US (occurrence: US)
  Receive Date: 20200217
  Receipt Date: 20201007
  Transmission Date: 20210113
  Serious: Yes (Other)
  Sender: FDA-Public Use
  Company Number: US-PFIZER INC-2019460972

PATIENT
  Age: 79 Year
  Sex: Female
  Weight: 54.42 kg

DRUGS (5)
  1. CADUET [Suspect]
     Active Substance: AMLODIPINE BESYLATE\ATORVASTATIN CALCIUM
     Indication: BLOOD PRESSURE ABNORMAL
  2. CADUET [Suspect]
     Active Substance: AMLODIPINE BESYLATE\ATORVASTATIN CALCIUM
     Indication: HYPERTENSION
     Dosage: UNK, 1X/DAY
     Dates: start: 2004
  3. LIPITOR [Suspect]
     Active Substance: ATORVASTATIN CALCIUM
     Dosage: UNK
  4. LISINOPRIL + HIDROCLOROTIAZIDA [Concomitant]
     Active Substance: HYDROCHLOROTHIAZIDE\LISINOPRIL
     Dosage: UNK, 1X/DAY, (20-12.5 MG 1 TAB QD)
  5. CADUET [Suspect]
     Active Substance: AMLODIPINE BESYLATE\ATORVASTATIN CALCIUM
     Indication: BLOOD CHOLESTEROL

REACTIONS (2)
  - Macular degeneration [Not Recovered/Not Resolved]
  - Weight increased [Unknown]
